FAERS Safety Report 19825331 (Version 1)
Quarter: 2021Q3

REPORT INFORMATION
  Report Type: Spontaneous
  Country: US (occurrence: US)
  Receive Date: 20210910
  Receipt Date: 20210910
  Transmission Date: 20211014
  Serious: Yes (Hospitalization)
  Sender: FDA-Public Use
  Company Number: None

PATIENT
  Age: 36 Year
  Sex: Male
  Weight: 108 kg

DRUGS (6)
  1. CYTARABINE. [Concomitant]
     Active Substance: CYTARABINE
     Dates: end: 20210825
  2. DAUNORUBICIN [Concomitant]
     Active Substance: DAUNORUBICIN
     Dates: end: 20210902
  3. VINCRISTINE SULFATE. [Concomitant]
     Active Substance: VINCRISTINE SULFATE
     Dates: end: 20210902
  4. ONCASPAR [Suspect]
     Active Substance: PEGASPARGASE
     Dates: end: 20210829
  5. DEXAMETHASONE. [Concomitant]
     Active Substance: DEXAMETHASONE
     Dates: end: 20210901
  6. METHOTREXATE. [Concomitant]
     Active Substance: METHOTREXATE
     Dates: end: 20210902

REACTIONS (4)
  - Aphasia [None]
  - Haematoma [None]
  - Subdural haematoma [None]
  - Hemiplegia [None]

NARRATIVE: CASE EVENT DATE: 20210908
